FAERS Safety Report 7150877-4 (Version None)
Quarter: 2010Q4

REPORT INFORMATION
  Report Type: 
  Country: None (occurrence: None)
  Receive Date: 20101210
  Receipt Date: 20101201
  Transmission Date: 20110411
  Serious: Yes (Hospitalization)
  Sender: FDA-Public Use
  Company Number: FR-ROCHE-745832

PATIENT
  Sex: Female

DRUGS (3)
  1. HERCEPTIN [Suspect]
     Dosage: 3 CYCLES (AUG, SEP, OCT)
     Route: 042
     Dates: start: 20100825, end: 20101014
  2. TAXOL [Suspect]
     Dosage: CYCLE IN OCTOBER
     Route: 042
     Dates: start: 20101007, end: 20101014
  3. TAXOTERE [Suspect]
     Dosage: 2 CYCLES IN AUG AND SEP
     Route: 042
     Dates: start: 20100826, end: 20100915

REACTIONS (1)
  - HEPATIC FIBROSIS [None]
